FAERS Safety Report 7246022-7 (Version None)
Quarter: 2011Q1

REPORT INFORMATION
  Report Type: 
  Country: None (occurrence: None)
  Receive Date: 20110126
  Receipt Date: 20110114
  Transmission Date: 20110831
  Serious: Yes (Life-Threatening, Hospitalization, Other)
  Sender: FDA-Public Use
  Company Number: FR-ELI_LILLY_AND_COMPANY-FR201101003470

PATIENT
  Sex: Female

DRUGS (1)
  1. GEMZAR [Suspect]
     Indication: PANCREATIC CARCINOMA METASTATIC
     Dosage: 1300 MG, UNK
     Route: 042
     Dates: end: 20100429

REACTIONS (13)
  - HAEMOLYTIC URAEMIC SYNDROME [None]
  - CEREBRAL HAEMATOMA [None]
  - SEPSIS [None]
  - RETINAL DISORDER [None]
  - PLEURAL EFFUSION [None]
  - OEDEMA PERIPHERAL [None]
  - WEIGHT INCREASED [None]
  - ASCITES [None]
  - VASCULITIS [None]
  - EPILEPSY [None]
  - CONVULSION [None]
  - HYPERTENSION [None]
  - MITRAL VALVE INCOMPETENCE [None]
